FAERS Safety Report 20091072 (Version 1)
Quarter: 2021Q4

REPORT INFORMATION
  Report Type: Spontaneous
  Country: FR (occurrence: FR)
  Receive Date: 20211119
  Receipt Date: 20211119
  Transmission Date: 20220304
  Serious: Yes (Hospitalization)
  Sender: FDA-Public Use
  Company Number: None

PATIENT
  Age: 37 Year
  Sex: Female
  Weight: 63 kg

DRUGS (4)
  1. CARBAMAZEPINE [Suspect]
     Active Substance: CARBAMAZEPINE
     Indication: Bipolar II disorder
     Dosage: 400 MILLIGRAM DAILY; THERAPY START DATE :NOT ASKED, THERAPY END DATE :NOT ASKED
     Route: 048
  2. CYAMEMAZINE [Suspect]
     Active Substance: CYAMEMAZINE
     Indication: Anxiety
     Dosage: THERAPY START DATE :NOT ASKED, THERAPY END DATE :NOT ASKED
     Route: 048
  3. EFFEXOR [Suspect]
     Active Substance: VENLAFAXINE HYDROCHLORIDE
     Indication: Depression
     Dosage: 150 MILLIGRAM DAILY; THERAPY START DATE :NOT ASKED, THERAPY END DATE :NOT ASKED
     Route: 048
  4. LOXAPINE [Suspect]
     Active Substance: LOXAPINE
     Indication: Anxiety
     Dosage: 25 MG,THERAPY START DATE :NOT ASKED,THERAPY END DATE :NOT ASKED
     Route: 048

REACTIONS (1)
  - Trismus [Not Recovered/Not Resolved]

NARRATIVE: CASE EVENT DATE: 20180101
